FAERS Safety Report 24691234 (Version 1)
Quarter: 2024Q4

REPORT INFORMATION
  Report Type: Spontaneous
  Country: ES (occurrence: ES)
  Receive Date: 20241203
  Receipt Date: 20241203
  Transmission Date: 20250114
  Serious: Yes (Other)
  Sender: MYLAN
  Company Number: None

PATIENT
  Age: 75 Year
  Sex: Male

DRUGS (3)
  1. OXALIPLATIN [Interacting]
     Active Substance: OXALIPLATIN
     Indication: Colorectal cancer metastatic
     Dosage: UNK (RECEIVED SEVERAL CYCLES; EXPERIENCED ADR ONE WEEK AFTER A NEW DOSE), UNKNOWN
     Route: 065
  2. IOHEXOL [Interacting]
     Active Substance: IOHEXOL
     Indication: Scan with contrast
     Dosage: UNK (RECEIVED SEVERAL CYCLES; EXPERIENCED ADR ONE WEEK AFTER A NEW DOSE), UNKNOWN
     Route: 065
  3. CAPECITABINE [Concomitant]
     Active Substance: CAPECITABINE
     Indication: Colorectal cancer metastatic
     Dosage: UNK (RECEIVED SEVERAL CYCLES), UNKNOWN
     Route: 065

REACTIONS (2)
  - Drug reaction with eosinophilia and systemic symptoms [Unknown]
  - Drug interaction [Unknown]
